FAERS Safety Report 9685534 (Version 1)
Quarter: 2013Q4

REPORT INFORMATION
  Report Type: Spontaneous
  Country: FR (occurrence: FR)
  Receive Date: 20131113
  Receipt Date: 20131113
  Transmission Date: 20140711
  Serious: Yes (Other)
  Sender: FDA-Public Use
  Company Number: FR-BRISTOL-MYERS SQUIBB COMPANY-19793298

PATIENT
  Age: 36 Year
  Sex: Female

DRUGS (4)
  1. YERVOY [Suspect]
     Indication: MALIGNANT MELANOMA
     Dosage: 4 DOSES:28JUN13,22JUL2013,12AUG2013,04SEP2013.
     Route: 042
     Dates: start: 20130628
  2. KEPPRA [Concomitant]
  3. HYDROCORTISONE [Concomitant]
  4. SEROPLEX [Concomitant]

REACTIONS (1)
  - Thrombocytopenia [Not Recovered/Not Resolved]
